FAERS Safety Report 23827182 (Version 3)
Quarter: 2024Q4

REPORT INFORMATION
  Report Type: Report from Study
  Country: US (occurrence: US)
  Receive Date: 20240507
  Receipt Date: 20241225
  Transmission Date: 20250115
  Serious: Yes (Disabling)
  Sender: ABBVIE
  Company Number: US-ABBVIE-5745824

PATIENT
  Sex: Male

DRUGS (1)
  1. RINVOQ [Suspect]
     Active Substance: UPADACITINIB
     Indication: Psoriatic arthropathy
     Route: 048
     Dates: start: 20230726

REACTIONS (5)
  - Slow speech [Unknown]
  - Joint swelling [Recovering/Resolving]
  - Therapeutic product effect incomplete [Unknown]
  - Speech disorder [Unknown]
  - Disability [Unknown]
